FAERS Safety Report 9636527 (Version 1)
Quarter: 2013Q4

REPORT INFORMATION
  Report Type: Spontaneous
  Country: US (occurrence: None)
  Receive Date: 20131017
  Receipt Date: 20131017
  Transmission Date: 20140711
  Serious: Yes (Hospitalization, Other)
  Sender: FDA-Public Use
  Company Number: ADR-2013-01854

PATIENT
  Age: 47 Year
  Sex: Female

DRUGS (3)
  1. BACLOFEN INTRATHECAL 125MCG/ML [Suspect]
     Indication: MUSCLE SPASTICITY
     Dosage: 20.03 MCG/DAY
  2. FENTANYL INTRATHECAL 500 MCG/ML [Suspect]
     Dosage: 80.12 MCG/DAY
  3. MORPHINE INTRATHECAL 10MG/ML [Suspect]
     Dosage: 1MG/DAY

REACTIONS (6)
  - Drug hypersensitivity [None]
  - Inadequate analgesia [None]
  - Nausea [None]
  - Vomiting [None]
  - Feeling abnormal [None]
  - Muscle twitching [None]
